FAERS Safety Report 6823405-8 (Version None)
Quarter: 2010Q3

REPORT INFORMATION
  Report Type: 
  Country: None (occurrence: None)
  Receive Date: 20100708
  Receipt Date: 20100629
  Transmission Date: 20110219
  Serious: Yes (Other)
  Sender: FDA-Public Use
  Company Number: US-PFIZER INC-2010068630

PATIENT
  Sex: Female
  Weight: 61 kg

DRUGS (10)
  1. LIPITOR [Suspect]
     Indication: BLOOD CHOLESTEROL INCREASED
     Dosage: 10 MG, DAILY
     Dates: start: 20050101, end: 20100501
  2. ACTONEL [Suspect]
     Indication: OSTEOPENIA
     Dosage: UNK
     Route: 048
     Dates: end: 20090701
  3. ACTONEL [Suspect]
     Dates: start: 20070501, end: 20090801
  4. ADVAIR DISKUS 100/50 [Concomitant]
     Indication: ASTHMA
     Dosage: 100/50MG
  5. LOVAZA [Concomitant]
  6. COENZYME Q10 [Concomitant]
  7. VITAMIN C [Concomitant]
  8. VITAMIN E [Concomitant]
  9. MULTI-VITAMINS [Concomitant]
  10. CALCIUM WITH VITAMIN D [Concomitant]

REACTIONS (11)
  - BACK PAIN [None]
  - FATIGUE [None]
  - FEELING ABNORMAL [None]
  - LETHARGY [None]
  - MALAISE [None]
  - MUSCULAR WEAKNESS [None]
  - MYALGIA [None]
  - PAIN IN EXTREMITY [None]
  - POLLAKIURIA [None]
  - URINARY TRACT INFECTION [None]
  - URINE ABNORMALITY [None]
